FAERS Safety Report 17025275 (Version 1)
Quarter: 2019Q4

REPORT INFORMATION
  Report Type: Report from Study
  Country: TW (occurrence: TW)
  Receive Date: 20191113
  Receipt Date: 20191113
  Transmission Date: 20200122
  Serious: Yes (Death, Other)
  Sender: FDA-Public Use
  Company Number: TW-ACTELION-A-CH2018-168516

PATIENT
  Age: 24 Year
  Sex: Female

DRUGS (12)
  1. UPTRAVI [Suspect]
     Active Substance: SELEXIPAG
     Indication: PULMONARY ARTERIAL HYPERTENSION
     Dosage: 200 MCG, BID
     Route: 048
     Dates: start: 20180226
  2. ACETAMINOPHEN. [Concomitant]
     Active Substance: ACETAMINOPHEN
     Indication: NASOPHARYNGITIS
     Dosage: UNK UNK, QID
     Dates: start: 20191105, end: 20191108
  3. ACTEIN [Concomitant]
     Indication: NASOPHARYNGITIS
     Dosage: UNK, QID
     Dates: start: 20191105, end: 20191108
  4. TROGIN [Concomitant]
     Indication: NASOPHARYNGITIS
     Dosage: UNK, PRN
  5. UPTRAVI [Suspect]
     Active Substance: SELEXIPAG
     Dosage: 1000 MCG, QD
     Route: 048
     Dates: end: 20191108
  6. PREDNISOLONE. [Concomitant]
     Active Substance: PREDNISOLONE
     Indication: NASOPHARYNGITIS
     Dosage: UNK, QID
     Dates: start: 20191105, end: 20191105
  7. REVATIO [Concomitant]
     Active Substance: SILDENAFIL CITRATE
     Indication: PULMONARY ARTERIAL HYPERTENSION
     Dosage: 20 MG, BID
     Route: 048
     Dates: start: 20141101
  8. IBUPROFEN. [Concomitant]
     Active Substance: IBUPROFEN
     Indication: NASOPHARYNGITIS
     Dosage: UNK, QID
     Dates: start: 20191105, end: 20191105
  9. OPSUMIT [Suspect]
     Active Substance: MACITENTAN
     Indication: PULMONARY ARTERIAL HYPERTENSION
     Dosage: 10 MG, QD
     Route: 048
     Dates: start: 20161123, end: 20191108
  10. ASPIRIN. [Concomitant]
     Active Substance: ASPIRIN
     Dosage: 100 MG, QD
     Dates: end: 20191108
  11. AMOXICILLIN. [Concomitant]
     Active Substance: AMOXICILLIN
     Dosage: UNK, QID
     Dates: start: 20191105, end: 20191105
  12. NOCOUGH [Concomitant]
     Indication: NASOPHARYNGITIS
     Dosage: 10 ML, QID
     Dates: start: 20191105, end: 20191105

REACTIONS (11)
  - Pain in jaw [Unknown]
  - Feeling abnormal [Unknown]
  - Nausea [Unknown]
  - Loss of consciousness [Unknown]
  - Fall [Unknown]
  - Skin discolouration [Unknown]
  - Cough [Unknown]
  - Haemorrhage [Unknown]
  - Head injury [Fatal]
  - Headache [Unknown]
  - Inflammation [Unknown]

NARRATIVE: CASE EVENT DATE: 20171104
